FAERS Safety Report 8151004-7 (Version None)
Quarter: 2012Q1

REPORT INFORMATION
  Report Type: 
  Country: None (occurrence: None)
  Receive Date: 20120220
  Receipt Date: 20120210
  Transmission Date: 20120608
  Serious: Yes (Hospitalization)
  Sender: FDA-Public Use
  Company Number: AT-BRISTOL-MYERS SQUIBB COMPANY-16173924

PATIENT
  Age: 72 Year
  Sex: Male
  Weight: 81 kg

DRUGS (11)
  1. YERVOY [Suspect]
     Indication: METASTATIC MALIGNANT MELANOMA
     Dosage: 3RD CYCLE ADMINISTERED:22SEP11,STOP DT:28OCT2011,243MG:11AUG11,1SEP11,22SEP11,273MG:28OCT11.
     Route: 042
     Dates: start: 20110811
  2. SANGENOR [Concomitant]
     Dosage: AMPOULE
  3. FOSTER [Concomitant]
     Dosage: AEROSOL
  4. BISOPROLOL FUMARATE [Concomitant]
     Dosage: 1-0-0 DAILY
  5. RENACOR [Concomitant]
  6. VITAMIN D [Concomitant]
     Dosage: MAXLKALZ VITAMIN D3 1-0-1 DAILY
  7. LAEVOLAC [Concomitant]
  8. AMARYL [Concomitant]
     Dosage: 1-0-0 DAILY
  9. AGGRENOX [Concomitant]
     Dosage: 1DF=200/25MG
  10. AMLODIPINE [Concomitant]
     Dosage: 1-0-0 DAILY
  11. DOXAZOSIN [Concomitant]
     Dosage: 1-0-0

REACTIONS (3)
  - FALL [None]
  - DIPLOPIA [None]
  - ASTHENIA [None]
